FAERS Safety Report 5706071-4 (Version None)
Quarter: 2008Q2

REPORT INFORMATION
  Report Type: 
  Country: None (occurrence: None)
  Receive Date: 20080415
  Receipt Date: 20070201
  Transmission Date: 20081010
  Serious: Yes (Death)
  Sender: FDA-Public Use
  Company Number: PL-ROCHE-558659

PATIENT
  Age: 54 Year
  Sex: Female

DRUGS (2)
  1. CAPECITABINE [Suspect]
     Dosage: TWO WEEKS TREATMENT FOLLOWED BY ONE WEEK REST.
     Route: 048
  2. GEMCITABINE [Suspect]
     Dosage: GIVEN ON DAY ONE AND EIGHT OF EVERY 3 WEEKS.
     Route: 042

REACTIONS (2)
  - CHOLESTASIS [None]
  - DEATH [None]
